FAERS Safety Report 20502549 (Version 1)
Quarter: 2022Q1

REPORT INFORMATION
  Report Type: Spontaneous
  Country: US (occurrence: US)
  Receive Date: 20220222
  Receipt Date: 20220222
  Transmission Date: 20220424
  Serious: No
  Sender: FDA-Public Use
  Company Number: US-SA-SAC20220216000141

PATIENT
  Age: 72 Year
  Sex: Female

DRUGS (14)
  1. DUPIXENT [Suspect]
     Active Substance: DUPILUMAB
     Indication: Asthma
     Dosage: 600 MG
     Route: 058
  2. DUPIXENT [Suspect]
     Active Substance: DUPILUMAB
     Dosage: 300 MG
     Route: 058
  3. DICLOFENAC [Concomitant]
     Active Substance: DICLOFENAC
  4. EPINEPHRINE [Concomitant]
     Active Substance: EPINEPHRINE
  5. ESTRADIOL [Concomitant]
     Active Substance: ESTRADIOL
  6. EZETIMIBE [Concomitant]
     Active Substance: EZETIMIBE
  7. FLUTICASONE [Concomitant]
     Active Substance: FLUTICASONE
  8. GABAPENTIN [Concomitant]
     Active Substance: GABAPENTIN
  9. REPATHA [Concomitant]
     Active Substance: EVOLOCUMAB
  10. TIZANIDINE HYDROCHLORIDE [Concomitant]
     Active Substance: TIZANIDINE HYDROCHLORIDE
  11. VICTOZA [Concomitant]
     Active Substance: LIRAGLUTIDE
  12. METOPROLOL TARTRATE [Concomitant]
     Active Substance: METOPROLOL TARTRATE
  13. METOPROLOL [Concomitant]
     Active Substance: METOPROLOL
  14. TIZANIDINE [Concomitant]
     Active Substance: TIZANIDINE

REACTIONS (3)
  - Skin disorder [Unknown]
  - Blister [Recovered/Resolved]
  - Pruritus [Recovered/Resolved]
